FAERS Safety Report 5210975-9 (Version None)
Quarter: 2007Q1

REPORT INFORMATION
  Report Type: 
  Country: None (occurrence: None)
  Receive Date: 20070117
  Receipt Date: 20070105
  Transmission Date: 20070707
  Serious: Yes (Other)
  Sender: FDA-Public Use
  Company Number: BR-PFIZER INC-2007002562

PATIENT
  Sex: Female

DRUGS (3)
  1. XALATAN [Suspect]
  2. ALL OTHER THERAPEUTIC PRODUCTS [Concomitant]
     Route: 047
  3. ALL OTHER THERAPEUTIC PRODUCTS [Concomitant]

REACTIONS (3)
  - BLINDNESS [None]
  - DRUG INEFFECTIVE [None]
  - SURGERY [None]
